FAERS Safety Report 10388847 (Version 1)
Quarter: 2014Q1

REPORT INFORMATION
  Report Type: Spontaneous
  Country: US (occurrence: None)
  Receive Date: 20140306
  Receipt Date: 20140306
  Transmission Date: 20141002
  Serious: Yes (Life-Threatening, Hospitalization, Other)
  Sender: FDA-Public Use
  Company Number: 163-21880-13100586

PATIENT
  Age: 68 Year
  Sex: Male

DRUGS (7)
  1. REVLIMID (LENALIDOMIDE)(25 MILLIGRAM, CAPSULES) [Suspect]
     Indication: PLASMA CELL MYELOMA
     Dosage: 14 IN 21 D,  TEMPORARILY INTERRUPTED
     Route: 048
     Dates: start: 20130823
  2. COMPLETE MULTIVITAMIN(MULTIVITAMINS)(TABLETS) [Concomitant]
  3. LOVENOX(HEPARIN-FRACTION, SODIUM SALT) (UNKNOWN) [Concomitant]
  4. VELCADE(BORTEZOMIB)(INJECTION) [Concomitant]
  5. DECADRON(DEXAMETHASONE) (UNKNOWN [Concomitant]
  6. AREDIA(PAMIDRONATE DISODIUM) (UNKNOWN) [Concomitant]
  7. BABY ASPIRIN(ACETYLSALICYLIC ACID)(UNKNOWN) [Concomitant]

REACTIONS (7)
  - Thrombosis [None]
  - Abdominal pain upper [None]
  - Constipation [None]
  - Urinary tract infection [None]
  - Oedema peripheral [None]
  - Urinary retention [None]
  - Pseudomonas infection [None]
